FAERS Safety Report 6840600-2 (Version None)
Quarter: 2010Q3

REPORT INFORMATION
  Report Type: 
  Country: None (occurrence: None)
  Receive Date: 20100714
  Receipt Date: 20100712
  Transmission Date: 20110219
  Serious: Yes (Life-Threatening)
  Sender: FDA-Public Use
  Company Number: B0665017A

PATIENT
  Age: 68 Year
  Sex: Female

DRUGS (7)
  1. AMPICILLIN SODIUM/SULBACTAM SODIUM [Suspect]
     Indication: PROPHYLAXIS
     Route: 042
     Dates: start: 20090602, end: 20090602
  2. LEVOTHYROXINE SODIUM [Concomitant]
  3. LANSOPRAZOLE [Concomitant]
  4. CITALOPRAM HYDROBROMIDE [Concomitant]
  5. IBUPROFEN [Concomitant]
  6. ARIMIDEX [Concomitant]
  7. MIRAPEX [Concomitant]

REACTIONS (1)
  - ANAPHYLACTIC SHOCK [None]
